FAERS Safety Report 9596578 (Version 1)
Quarter: 2013Q4

REPORT INFORMATION
  Report Type: Spontaneous
  Country: CH (occurrence: CH)
  Receive Date: 20131004
  Receipt Date: 20131004
  Transmission Date: 20140711
  Serious: Yes (Hospitalization)
  Sender: FDA-Public Use
  Company Number: CH-TEVA-435153ISR

PATIENT
  Age: 37 Year
  Sex: Male

DRUGS (2)
  1. IRFEN [Suspect]
     Indication: BACK PAIN
     Dosage: 1800 MILLIGRAM DAILY;
     Route: 048
     Dates: start: 20130626, end: 20130707
  2. MAXALT [Concomitant]
     Indication: MIGRAINE
     Dosage: 5 MILLIGRAM DAILY;
     Route: 048

REACTIONS (4)
  - Meningitis aseptic [Recovered/Resolved]
  - Headache [Recovered/Resolved]
  - Vomiting [Recovered/Resolved]
  - Nausea [Recovered/Resolved]
